FAERS Safety Report 12738475 (Version 1)
Quarter: 2016Q3

REPORT INFORMATION
  Report Type: Spontaneous
  Country: US (occurrence: US)
  Receive Date: 20160912
  Receipt Date: 20160912
  Transmission Date: 20161109
  Serious: Yes (Other)
  Sender: FDA-Public Use
  Company Number: None

PATIENT
  Age: 43 Year
  Sex: Female
  Weight: 73.35 kg

DRUGS (6)
  1. BLACK RADIANCE TRUE COMPLEXION BB CREAM SPF 15 [Suspect]
     Active Substance: HOMOSALATE\OCTISALATE\OCTOCRYLENE
     Indication: THERAPEUTIC SKIN CARE TOPICAL
     Dosage: OTHER STRENGTH:;OTHER DOSE:;OTHER FREQUENCY:;OTHER ROUTE:APPLIED TO FACE
     Dates: start: 20160630, end: 20160907
  2. IMAN SKIN TONE EVENER BB SPF 15 [Suspect]
     Active Substance: OCTINOXATE\OXYBENZONE
     Indication: THERAPEUTIC SKIN CARE TOPICAL
     Dosage: OTHER STRENGTH:;OTHER DOSE:;OTHER FREQUENCY:;OTHER ROUTE:APPLIED TO FACE
     Dates: start: 20160131, end: 20160910
  3. BABY ASPIRIN [Concomitant]
     Active Substance: ASPIRIN
  4. NAPROXEN. [Concomitant]
     Active Substance: NAPROXEN
  5. NORTRIPTYLINE [Concomitant]
     Active Substance: NORTRIPTYLINE
  6. ALPRAZOLAM. [Concomitant]
     Active Substance: ALPRAZOLAM

REACTIONS (2)
  - Product tampering [None]
  - Muscle atrophy [None]

NARRATIVE: CASE EVENT DATE: 20160910
